FAERS Safety Report 5514925-7 (Version None)
Quarter: 2007Q4

REPORT INFORMATION
  Report Type: 
  Country: None (occurrence: None)
  Receive Date: 20071113
  Receipt Date: 20061005
  Transmission Date: 20080405
  Serious: No
  Sender: FDA-Public Use
  Company Number: A0622669A

PATIENT
  Age: 35 Year
  Sex: Female

DRUGS (1)
  1. COREG [Suspect]
     Indication: DRUG USE FOR UNKNOWN INDICATION
     Dosage: 50MG PER DAY
     Route: 065

REACTIONS (4)
  - DEPRESSION [None]
  - HORMONE LEVEL ABNORMAL [None]
  - MOOD SWINGS [None]
  - NEGATIVISM [None]
